FAERS Safety Report 10856088 (Version 2)
Quarter: 2015Q1

REPORT INFORMATION
  Report Type: Spontaneous
  Country: BG (occurrence: BG)
  Receive Date: 20150223
  Receipt Date: 20150309
  Transmission Date: 20150721
  Serious: Yes (Life-Threatening, Hospitalization, Other)
  Sender: FDA-Public Use
  Company Number: BG-ACTAVIS-2015-03071

PATIENT
  Age: 10 Year
  Sex: Female

DRUGS (8)
  1. THEOPHYLLINE (UNKNOWN) [Suspect]
     Active Substance: THEOPHYLLINE ANHYDROUS
     Indication: RESPIRATORY TRACT INFECTION
     Dosage: 150 MG, UNKNOWN,3 INTAKES
     Route: 048
  2. KLACID                             /00984601/ [Suspect]
     Active Substance: CLARITHROMYCIN
     Indication: RESPIRATORY TRACT INFECTION
     Dosage: UNK
     Route: 065
  3. COORDINAX [Suspect]
     Active Substance: CISAPRIDE
     Indication: ABDOMINAL PAIN UPPER
     Dosage: UNK, DAILY
     Route: 065
  4. OMEPRAZOLE (UNKNOWN) [Suspect]
     Active Substance: OMEPRAZOLE
     Indication: ABDOMINAL PAIN UPPER
     Dosage: UNK, DAILY
     Route: 048
     Dates: start: 2012
  5. XYZAL [Concomitant]
     Active Substance: LEVOCETIRIZINE DIHYDROCHLORIDE
     Indication: HYPERSENSITIVITY
     Dosage: 1 DF, DAILY
     Route: 048
  6. DIMEX [Suspect]
     Active Substance: AMMONIUM CHLORIDE\DIPHENHYDRAMINE HYDROCHLORIDE
     Indication: RESPIRATORY TRACT INFECTION
     Dosage: 125 ML, UNKNOWN( 1 VIAL)
     Route: 065
  7. CALCIUM GLUCONATE                  /01282001/ [Concomitant]
     Indication: PRODUCT USED FOR UNKNOWN INDICATION
     Dosage: UNK
     Route: 065
  8. VENTOLIN [Suspect]
     Active Substance: ALBUTEROL SULFATE
     Indication: RESPIRATORY TRACT INFECTION
     Dosage: 1 DF, SINGLE
     Route: 048

REACTIONS (4)
  - Nodal rhythm [Recovered/Resolved]
  - Drug interaction [Recovered/Resolved]
  - Electrocardiogram QT prolonged [Recovered/Resolved]
  - Epilepsy [Recovered/Resolved]
